FAERS Safety Report 17658801 (Version 1)
Quarter: 2020Q2

REPORT INFORMATION
  Report Type: Spontaneous
  Country: US (occurrence: US)
  Receive Date: 20200413
  Receipt Date: 20200413
  Transmission Date: 20200713
  Serious: Yes (Other)
  Sender: FDA-Public Use
  Company Number: US-AMGEN-USASP2020057770

PATIENT
  Age: 62 Year
  Sex: Male

DRUGS (3)
  1. EVEROLIMUS. [Concomitant]
     Active Substance: EVEROLIMUS
     Indication: METASTATIC MALIGNANT MELANOMA
     Dosage: 1 MILLIGRAM, BID
  2. IMIQUIMOD. [Concomitant]
     Active Substance: IMIQUIMOD
     Indication: METASTATIC MALIGNANT MELANOMA
     Dosage: 1 GRAM, QD
     Route: 061
  3. TALIMOGENE LAHERPAREPVEC [Suspect]
     Active Substance: TALIMOGENE LAHERPAREPVEC
     Indication: MALIGNANT MELANOMA
     Dosage: 2 MILLILITER (1 MILLION PFU/ML)
     Route: 026

REACTIONS (7)
  - Night sweats [Recovered/Resolved]
  - Off label use [Unknown]
  - Fatigue [Recovered/Resolved]
  - Metastatic malignant melanoma [Recovered/Resolved]
  - Alopecia [Unknown]
  - Therapy non-responder [Unknown]
  - Achromotrichia acquired [Unknown]
